FAERS Safety Report 6894315-5 (Version None)
Quarter: 2010Q3

REPORT INFORMATION
  Report Type: 
  Country: None (occurrence: None)
  Receive Date: 20100708
  Receipt Date: 20091231
  Transmission Date: 20110219
  Serious: Yes (Other)
  Sender: FDA-Public Use
  Company Number: 2009300943

PATIENT
  Age: 40 Year
  Sex: Male
  Weight: 72.1 kg

DRUGS (3)
  1. CHANTIX [Suspect]
     Indication: SMOKING CESSATION THERAPY
     Dosage: 0.5 MG, 2X/DAY, ORAL; 0.5 MG, 1X/DAY; ORAL
     Route: 048
     Dates: start: 20091114, end: 20091116
  2. CHANTIX [Suspect]
     Indication: SMOKING CESSATION THERAPY
     Dosage: 0.5 MG, 2X/DAY, ORAL; 0.5 MG, 1X/DAY; ORAL
     Route: 048
     Dates: start: 20091114, end: 20091116
  3. PRAVASTATIN [Concomitant]

REACTIONS (6)
  - BLINDNESS TRANSIENT [None]
  - CONFUSIONAL STATE [None]
  - CRYING [None]
  - DEPRESSED MOOD [None]
  - HEADACHE [None]
  - LOSS OF CONSCIOUSNESS [None]
